FAERS Safety Report 4619103-1 (Version None)
Quarter: 2005Q1

REPORT INFORMATION
  Report Type: 
  Country: None (occurrence: None)
  Receive Date: 20050317
  Receipt Date: 20050317
  Transmission Date: 20050727
  Serious: No
  Sender: FDA-Public Use
  Company Number: None

PATIENT
  Age: 72 Year
  Sex: Male

DRUGS (1)
  1. ETODOLAC [Suspect]
     Indication: ARTHRALGIA
     Dosage: 400MG  PO  BID
     Dates: start: 20040902, end: 20041104

REACTIONS (1)
  - RASH [None]
